FAERS Safety Report 23628777 (Version 1)
Quarter: 2024Q1

REPORT INFORMATION
  Report Type: Spontaneous
  Country: US (occurrence: US)
  Receive Date: 20240313
  Receipt Date: 20240313
  Transmission Date: 20240410
  Serious: Yes (Other)
  Sender: FDA-Public Use
  Company Number: None

PATIENT
  Age: 67 Year
  Sex: Male

DRUGS (2)
  1. AMIODARONE [Suspect]
     Active Substance: AMIODARONE
     Indication: Ventricular extrasystoles
  2. IRON [Concomitant]
     Active Substance: IRON
     Indication: Iron deficiency

REACTIONS (2)
  - Bone marrow granuloma [Recovering/Resolving]
  - Self-medication [Recovered/Resolved]
